FAERS Safety Report 7884297-1 (Version None)
Quarter: 2011Q4

REPORT INFORMATION
  Report Type: 
  Country: None (occurrence: None)
  Receive Date: 20111102
  Receipt Date: 20111019
  Transmission Date: 20120403
  Serious: Yes (Hospitalization, Other)
  Sender: FDA-Public Use
  Company Number: US-ELI_LILLY_AND_COMPANY-US201110005521

PATIENT
  Age: 64 Year
  Sex: Male

DRUGS (8)
  1. VITAMIN TAB [Concomitant]
  2. FORTEO [Suspect]
     Indication: OSTEOPOROSIS
     Dosage: 20 UG, QD
     Route: 065
  3. PRILOSEC [Concomitant]
  4. CELEBREX [Concomitant]
  5. AMBIEN [Concomitant]
  6. FLORINEF [Concomitant]
  7. STRESSTABS [Concomitant]
  8. HYDROCORTISONE [Concomitant]

REACTIONS (2)
  - FALL [None]
  - UPPER LIMB FRACTURE [None]
